FAERS Safety Report 11037878 (Version 1)
Quarter: 2015Q2

REPORT INFORMATION
  Report Type: Spontaneous
  Country: JP (occurrence: JP)
  Receive Date: 20150416
  Receipt Date: 20150416
  Transmission Date: 20150821
  Serious: Yes (Death)
  Sender: FDA-Public Use
  Company Number: JP-BAYER-2015-117360

PATIENT
  Age: 74 Year
  Sex: Male

DRUGS (8)
  1. CONIEL [Concomitant]
     Active Substance: BENIDIPINE HYDROCHLORIDE
     Indication: HYPERTENSION
     Dosage: DAILY DOSE 4 MG
     Route: 048
     Dates: end: 20150113
  2. OLMETEC [Concomitant]
     Active Substance: OLMESARTAN MEDOXOMIL
     Indication: HYPERTENSION
     Dosage: DAILY DOSE 10 MG
     Route: 048
     Dates: end: 20150113
  3. PROHEPARUM [Concomitant]
     Active Substance: CHOLINE BITARTRATE\CYSTEINE\INOSITOL\MAMMAL LIVER
     Indication: HEPATIC FUNCTION ABNORMAL
     Dosage: DAILY DOSE 3 DF
     Route: 048
     Dates: end: 20150113
  4. TROXSIN [Concomitant]
     Indication: GASTRITIS
     Dosage: DAILY DOSE 300 MG
     Route: 048
     Dates: end: 20150113
  5. NEXAVAR [Suspect]
     Active Substance: SORAFENIB
     Indication: HEPATOCELLULAR CARCINOMA
     Dosage: DAILY DOSE 400 MG
     Route: 048
     Dates: start: 20141101, end: 20141218
  6. URSO [Concomitant]
     Active Substance: URSODIOL
     Indication: HEPATIC FUNCTION ABNORMAL
     Dosage: DAILY DOSE 300 MG
     Route: 048
     Dates: end: 20150113
  7. REBAMIPIDE [Concomitant]
     Active Substance: REBAMIPIDE
     Indication: GASTRITIS
     Dosage: DAILY DOSE 300 MG
     Route: 048
     Dates: end: 20150113
  8. NEW LULU GOLD [Interacting]
     Active Substance: UNSPECIFIED INGREDIENT
     Indication: NASOPHARYNGITIS
     Dosage: UNK
     Route: 048
     Dates: start: 20141210

REACTIONS (4)
  - Drug interaction [None]
  - Nasopharyngitis [None]
  - Hepatic failure [Fatal]
  - Palmar-plantar erythrodysaesthesia syndrome [Recovered/Resolved]

NARRATIVE: CASE EVENT DATE: 2014
